FAERS Safety Report 18495991 (Version 1)
Quarter: 2020Q4

REPORT INFORMATION
  Report Type: Spontaneous
  Country: RO (occurrence: RO)
  Receive Date: 20201112
  Receipt Date: 20201112
  Transmission Date: 20210114
  Serious: Yes (Other)
  Sender: FDA-Public Use
  Company Number: RO-GLAXOSMITHKLINE-RO2020GSK217350

PATIENT
  Age: 50 Year
  Sex: Female

DRUGS (1)
  1. CEFUROXIME. [Suspect]
     Active Substance: CEFUROXIME
     Indication: SYSTEMIC MASTOCYTOSIS
     Dosage: UNK
     Route: 048

REACTIONS (4)
  - Tryptase increased [Unknown]
  - Bone marrow infiltration [Unknown]
  - Anaphylactic reaction [Unknown]
  - Fall [Unknown]
